FAERS Safety Report 26073446 (Version 1)
Quarter: 2025Q4

REPORT INFORMATION
  Report Type: Spontaneous
  Country: US (occurrence: US)
  Receive Date: 20251121
  Receipt Date: 20251121
  Transmission Date: 20260118
  Serious: Yes (Other)
  Sender: ALKEM
  Company Number: US-ALKEM LABORATORIES LIMITED-US-ALKEM-2025-12310

PATIENT
  Age: 3 Year
  Sex: Male

DRUGS (18)
  1. TACROLIMUS [Interacting]
     Active Substance: TACROLIMUS
     Indication: Immunosuppression
     Dosage: 0.6 MILLIGRAM, BID (0.1 MG/KG) (INDUCTION REGIMEN)
     Route: 065
  2. TACROLIMUS [Interacting]
     Active Substance: TACROLIMUS
     Dosage: 1.5 MILLIGRAM, BID (27-32 DAYS POST- LT)
     Route: 065
  3. TACROLIMUS [Interacting]
     Active Substance: TACROLIMUS
     Dosage: 0.5 MILLIGRAM, BID (38 DAYS POST- LT)
     Route: 065
  4. TACROLIMUS [Interacting]
     Active Substance: TACROLIMUS
     Dosage: 0.5 MILLIGRAM, QD  (43-46 DAYS POST- LT) (100-107 DAYS POST- LT)
     Route: 065
  5. TACROLIMUS [Interacting]
     Active Substance: TACROLIMUS
     Dosage: 0.2 MILLIGRAM, QD  (50 DAYS POST- LT) (228 DAYS POST- LT)
     Route: 065
  6. TACROLIMUS [Interacting]
     Active Substance: TACROLIMUS
     Dosage: 0.7 MILLIGRAM, QD (68 DAYS POST- LT)
     Route: 065
  7. TACROLIMUS [Interacting]
     Active Substance: TACROLIMUS
     Dosage: 0.2 MILLIGRAM, BID (165 DAYS POST- LT)
     Route: 065
  8. METHYLPREDNISOLONE [Suspect]
     Active Substance: METHYLPREDNISOLONE
     Indication: Immunosuppression
     Dosage: UNK (GRADUALLY WEANED)
     Route: 065
  9. POSACONAZOLE [Concomitant]
     Active Substance: POSACONAZOLE
     Indication: Antifungal prophylaxis
     Dosage: 6 MILLIGRAM/KILOGRAM, BID
     Route: 042
  10. POSACONAZOLE [Concomitant]
     Active Substance: POSACONAZOLE
     Dosage: 6 MILLIGRAM/KILOGRAM, QD
     Route: 042
  11. POSACONAZOLE [Concomitant]
     Active Substance: POSACONAZOLE
     Dosage: UNK (53 DAYS POST- LT)
  12. POSACONAZOLE [Concomitant]
     Active Substance: POSACONAZOLE
     Dosage: 40 MILLIGRAM, BID (32 DAYS POST- LT)
     Route: 065
  13. POSACONAZOLE [Concomitant]
     Active Substance: POSACONAZOLE
     Dosage: 40 MILLIGRAM, QD (38 DAYS POST- LT)
     Route: 065
  14. POSACONAZOLE [Concomitant]
     Active Substance: POSACONAZOLE
     Dosage: 60 MILLIGRAM, QD (43-45 DAYS POST- LT)
     Route: 065
  15. POSACONAZOLE [Concomitant]
     Active Substance: POSACONAZOLE
     Dosage: 60 MILLIGRAM, QD (43-45 DAYS POST- LT)
     Route: 065
  16. POSACONAZOLE [Concomitant]
     Active Substance: POSACONAZOLE
     Dosage: 50 MILLIGRAM, QD (46-50 DAYS POST- LT)
     Route: 065
  17. POSACONAZOLE [Concomitant]
     Active Substance: POSACONAZOLE
     Dosage: 64 MILLIGRAM, TID  (100-107 DAYS POST- LT)
     Route: 065
  18. POSACONAZOLE [Concomitant]
     Active Substance: POSACONAZOLE
     Dosage: 80 MILLIGRAM, TID  (165-228 DAYS POST- LT)
     Route: 065

REACTIONS (6)
  - Pneumatosis intestinalis [Unknown]
  - Acute graft versus host disease in skin [Recovered/Resolved]
  - Fungal infection [Unknown]
  - Immunosuppressant drug level increased [Unknown]
  - Epstein-Barr virus infection [Unknown]
  - Norovirus infection [Unknown]
